FAERS Safety Report 8043663-4 (Version None)
Quarter: 2012Q1

REPORT INFORMATION
  Report Type: 
  Country: None (occurrence: None)
  Receive Date: 20120112
  Receipt Date: 20120103
  Transmission Date: 20120608
  Serious: Yes (Other)
  Sender: FDA-Public Use
  Company Number: US-ASTRAZENECA-2012SE00666

PATIENT
  Sex: Female

DRUGS (3)
  1. PREDNISONE [Concomitant]
  2. SYMBICORT [Suspect]
     Route: 055
  3. ADVAIR DISKUS 100/50 [Concomitant]

REACTIONS (2)
  - PNEUMONIA [None]
  - INFECTION [None]
